FAERS Safety Report 14681954 (Version 1)
Quarter: 2018Q1

REPORT INFORMATION
  Report Type: Spontaneous
  Country: DE (occurrence: DE)
  Receive Date: 20180326
  Receipt Date: 20180326
  Transmission Date: 20180509
  Serious: Yes (Other)
  Sender: FDA-Public Use
  Company Number: DE-BAUSCH-BL-2018-006620

PATIENT
  Sex: Male

DRUGS (1)
  1. ALDARA [Suspect]
     Active Substance: IMIQUIMOD
     Indication: PRODUCT USED FOR UNKNOWN INDICATION
     Route: 065

REACTIONS (4)
  - Genital ulceration [Not Recovered/Not Resolved]
  - Purulence [Not Recovered/Not Resolved]
  - Beta haemolytic streptococcal infection [Not Recovered/Not Resolved]
  - Application site pain [Not Recovered/Not Resolved]
